FAERS Safety Report 4789644-5 (Version None)
Quarter: 2005Q4

REPORT INFORMATION
  Report Type: 
  Country: None (occurrence: None)
  Receive Date: 20051004
  Receipt Date: 20050926
  Transmission Date: 20060501
  Serious: Yes (Death, Life-Threatening, Other)
  Sender: FDA-Public Use
  Company Number: 2005133968

PATIENT
  Age: 40 Year
  Sex: Male
  Weight: 108.8633 kg

DRUGS (1)
  1. ZOLOFT [Suspect]
     Indication: DEPRESSION
     Dosage: 200 MG (100 MG, 2 IN 1 D), ORAL
     Route: 048
     Dates: start: 20000101, end: 20030317

REACTIONS (15)
  - APPENDIX DISORDER [None]
  - COLD SWEAT [None]
  - GALLBLADDER PERFORATION [None]
  - HEPATIC HAEMORRHAGE [None]
  - HEPATOMEGALY [None]
  - HYPERTENSION [None]
  - INFLUENZA [None]
  - MELANOCYTIC NAEVUS [None]
  - NASOPHARYNGITIS [None]
  - ORGAN FAILURE [None]
  - PANCREATITIS [None]
  - PRECANCEROUS SKIN LESION [None]
  - PULMONARY OEDEMA [None]
  - RENAL DISORDER [None]
  - THYROID DISORDER [None]
